FAERS Safety Report 16623807 (Version 2)
Quarter: 2019Q4

REPORT INFORMATION
  Report Type: Spontaneous
  Country: ES (occurrence: ES)
  Receive Date: 20190724
  Receipt Date: 20191202
  Transmission Date: 20200122
  Serious: Yes (Life-Threatening, Hospitalization, Other)
  Sender: FDA-Public Use
  Company Number: ES-ACCORD-139008

PATIENT
  Age: 57 Year
  Sex: Female

DRUGS (14)
  1. HALOPERIDOL. [Suspect]
     Active Substance: HALOPERIDOL
     Indication: BIPOLAR DISORDER
  2. SERTRALINE [Suspect]
     Active Substance: SERTRALINE HYDROCHLORIDE
     Indication: MANIA
  3. HALOPERIDOL. [Suspect]
     Active Substance: HALOPERIDOL
     Indication: MANIA
  4. LORMETAZEPAM [Concomitant]
     Active Substance: LORMETAZEPAM
     Indication: BIPOLAR DISORDER
  5. LORMETAZEPAM [Concomitant]
     Active Substance: LORMETAZEPAM
     Indication: MANIA
  6. HYDROXYZINE [Concomitant]
     Active Substance: HYDROXYZINE HYDROCHLORIDE
     Indication: BIPOLAR DISORDER
  7. HALOPERIDOL. [Suspect]
     Active Substance: HALOPERIDOL
     Indication: BIPOLAR DISORDER
  8. TRAZODONE [Suspect]
     Active Substance: TRAZODONE HYDROCHLORIDE
     Indication: BIPOLAR DISORDER
  9. PIMOZIDE. [Suspect]
     Active Substance: PIMOZIDE
     Indication: MANIA
  10. PIMOZIDE. [Suspect]
     Active Substance: PIMOZIDE
     Indication: BIPOLAR DISORDER
  11. SERTRALINE [Suspect]
     Active Substance: SERTRALINE HYDROCHLORIDE
     Indication: MANIA
  12. HYDROXYZINE [Concomitant]
     Active Substance: HYDROXYZINE HYDROCHLORIDE
     Indication: MANIA
  13. SIMVASTATIN. [Concomitant]
     Active Substance: SIMVASTATIN
     Indication: DYSLIPIDAEMIA
  14. SERTRALINE [Suspect]
     Active Substance: SERTRALINE HYDROCHLORIDE
     Indication: BIPOLAR DISORDER

REACTIONS (5)
  - Neuroleptic malignant syndrome [Recovering/Resolving]
  - Polymyalgia rheumatica [Unknown]
  - Normocytic anaemia [Recovering/Resolving]
  - Inappropriate antidiuretic hormone secretion [Unknown]
  - Serotonin syndrome [Recovered/Resolved]
